FAERS Safety Report 7403466-8 (Version None)
Quarter: 2011Q2

REPORT INFORMATION
  Report Type: 
  Country: None (occurrence: None)
  Receive Date: 20110408
  Receipt Date: 20110401
  Transmission Date: 20111010
  Serious: Yes (Other)
  Sender: FDA-Public Use
  Company Number: B0710234A

PATIENT
  Sex: Male

DRUGS (13)
  1. FORTUM [Suspect]
     Dosage: 2G THREE TIMES PER DAY
     Route: 042
     Dates: start: 20101222, end: 20101231
  2. ELISOR [Concomitant]
     Route: 048
  3. VENTOLIN [Concomitant]
     Indication: BRONCHOPNEUMOPATHY
     Dosage: 100MCG FOUR TIMES PER DAY
     Route: 055
  4. PERMIXON [Concomitant]
     Dosage: 160MG TWICE PER DAY
     Route: 048
  5. IKOREL [Concomitant]
     Dosage: 1UNIT TWICE PER DAY
     Route: 048
  6. COVERSYL [Concomitant]
     Dosage: 2.5MG TWICE PER DAY
     Route: 048
  7. CEFTRIAXONE SODIUM [Suspect]
     Dosage: 1UNIT PER DAY
     Route: 042
     Dates: start: 20101220, end: 20101222
  8. TAVANIC [Suspect]
     Dosage: 500MG PER DAY
     Route: 048
     Dates: start: 20101220, end: 20101224
  9. HALDOL [Suspect]
     Dosage: 1UNIT PER DAY
     Route: 058
     Dates: start: 20101221, end: 20101231
  10. SOLU-MEDROL [Suspect]
     Dosage: 2UNIT PER DAY
     Route: 042
     Dates: start: 20101223, end: 20101231
  11. BUDESONIDE [Suspect]
     Dosage: 1UNIT FOUR TIMES PER DAY
     Route: 055
     Dates: start: 20101220, end: 20101231
  12. CORDARONE [Concomitant]
     Indication: ATRIAL FIBRILLATION
     Route: 048
     Dates: end: 20101221
  13. IPRATROPIUM BROMIDE [Suspect]
     Dosage: 1UNIT FOUR TIMES PER DAY
     Route: 055
     Dates: start: 20101220, end: 20101231

REACTIONS (1)
  - CONFUSIONAL STATE [None]
